FAERS Safety Report 6267441-1 (Version None)
Quarter: 2009Q3

REPORT INFORMATION
  Report Type: 
  Country: None (occurrence: None)
  Receive Date: 20090714
  Receipt Date: 20090702
  Transmission Date: 20100115
  Serious: No
  Sender: FDA-Public Use
  Company Number: JP-EISAI INC.-E3810-02950-SPO-JP

PATIENT
  Age: 70 Year
  Sex: Female

DRUGS (6)
  1. PARIET (RABEPRAZOLE) [Suspect]
     Indication: REFLUX OESOPHAGITIS
     Route: 048
     Dates: start: 20081023, end: 20081031
  2. PARIET (RABEPRAZOLE) [Suspect]
     Route: 048
     Dates: start: 20081023, end: 20081031
  3. GASMOTIN [Concomitant]
     Route: 048
  4. GASCON [Concomitant]
     Route: 048
  5. BIOFERMIN [Concomitant]
     Route: 048
  6. PRIMPERAN [Concomitant]
     Route: 048

REACTIONS (1)
  - HEPATIC FUNCTION ABNORMAL [None]
